FAERS Safety Report 4543985-5 (Version None)
Quarter: 2004Q4

REPORT INFORMATION
  Report Type: 
  Country: None (occurrence: None)
  Receive Date: 20041229
  Receipt Date: 20041229
  Transmission Date: 20050328
  Serious: Yes (Hospitalization)
  Sender: FDA-Public Use
  Company Number: None

PATIENT
  Age: 76 Year
  Sex: Female
  Weight: 63.9572 kg

DRUGS (9)
  1. CISPLATIN [Suspect]
     Indication: OESOPHAGEAL CARCINOMA
     Dosage: 58MG,  38MG  C1D1+8 INTRAVENOUS
     Route: 042
     Dates: start: 20041213, end: 20041220
  2. IRINOTECAN [Suspect]
     Indication: OESOPHAGEAL CARCINOMA
     Dosage: 108MG  C1D1+8 INTRAVENOUS
     Route: 042
     Dates: start: 20041213, end: 20041220
  3. IRESSA [Concomitant]
  4. XANAX [Concomitant]
  5. ROBITUSSIN-G [Concomitant]
  6. SEPTRA DS [Concomitant]
  7. FLUCONAZOLE [Concomitant]
  8. IMODIUM [Concomitant]
  9. LORAZEPAM [Concomitant]

REACTIONS (8)
  - CHILLS [None]
  - DIARRHOEA [None]
  - DRUG INEFFECTIVE [None]
  - FAILURE TO THRIVE [None]
  - FATIGUE [None]
  - HYPONATRAEMIA [None]
  - NEUTROPENIA [None]
  - TREMOR [None]
